FAERS Safety Report 19188849 (Version 1)
Quarter: 2021Q2

REPORT INFORMATION
  Report Type: Spontaneous
  Country: SA (occurrence: SA)
  Receive Date: 20210428
  Receipt Date: 20210428
  Transmission Date: 20210717
  Serious: Yes (Other)
  Sender: FDA-Public Use
  Company Number: SA-SUN PHARMACEUTICAL INDUSTRIES LTD-2021RR-293612

PATIENT
  Age: 27 Year
  Sex: Male

DRUGS (6)
  1. DEXAMETHASONE. [Suspect]
     Active Substance: DEXAMETHASONE
     Indication: T-CELL LYMPHOMA
     Dosage: 4 CYCLES, COMPLETED IN MAR 2014
     Route: 065
  2. DOXORUBICIN [Suspect]
     Active Substance: DOXORUBICIN
     Indication: T-CELL LYMPHOMA
     Dosage: 4 CYCLES, COMPLETED IN MAR 2014
     Route: 065
     Dates: end: 201403
  3. VINCRISTINE [Suspect]
     Active Substance: VINCRISTINE
     Indication: T-CELL LYMPHOMA
     Dosage: 4 CYCLES, COMPLETED IN MAR 2014
     Route: 065
     Dates: end: 201403
  4. CYCLOPHOSPHAMIDE. [Suspect]
     Active Substance: CYCLOPHOSPHAMIDE
     Indication: T-CELL LYMPHOMA
     Dosage: 4 CYCLES, COMPLETED IN MAR 2014
     Route: 065
     Dates: end: 201403
  5. METHOTREXATE. [Suspect]
     Active Substance: METHOTREXATE
     Indication: T-CELL LYMPHOMA
     Dosage: 4 CYCLES, COMPLETED IN MAR 2014
     Route: 065
     Dates: end: 201403
  6. CYTARABINE. [Suspect]
     Active Substance: CYTARABINE
     Indication: T-CELL LYMPHOMA
     Dosage: 4 CYCLES, COMPLETED IN MAR 2014
     Route: 065
     Dates: end: 201403

REACTIONS (1)
  - Febrile neutropenia [Recovered/Resolved]
